FAERS Safety Report 19246206 (Version 1)
Quarter: 2021Q2

REPORT INFORMATION
  Report Type: Spontaneous
  Country: US (occurrence: US)
  Receive Date: 20210511
  Receipt Date: 20210511
  Transmission Date: 20210717
  Serious: Yes (Other)
  Sender: FDA-Public Use
  Company Number: None

PATIENT
  Age: 89 Year
  Sex: Male

DRUGS (1)
  1. REVLIMID [Suspect]
     Active Substance: LENALIDOMIDE
     Indication: PLASMA CELL MYELOMA
     Route: 048
     Dates: start: 20210408, end: 20210506

REACTIONS (5)
  - Nausea [None]
  - Flatulence [None]
  - Fatigue [None]
  - Constipation [None]
  - Therapy cessation [None]

NARRATIVE: CASE EVENT DATE: 20210511
